FAERS Safety Report 8535716-9 (Version None)
Quarter: 2012Q3

REPORT INFORMATION
  Report Type: 
  Country: None (occurrence: None)
  Receive Date: 20120725
  Receipt Date: 20120720
  Transmission Date: 20120928
  Serious: No
  Sender: FDA-Public Use
  Company Number: US-PFIZER INC-2012177561

PATIENT
  Sex: Male

DRUGS (2)
  1. INLYTA [Suspect]
     Indication: MALIGNANT URINARY TRACT NEOPLASM
     Dosage: 5 MG, 2X/DAY
     Dates: start: 20120627
  2. A AND D OINTMENT [Concomitant]
     Indication: BACK PAIN

REACTIONS (5)
  - RHINORRHOEA [None]
  - WEIGHT DECREASED [None]
  - FREQUENT BOWEL MOVEMENTS [None]
  - DYSPHONIA [None]
  - DECREASED APPETITE [None]
